FAERS Safety Report 6462119-3 (Version None)
Quarter: 2009Q4

REPORT INFORMATION
  Report Type: 
  Country: None (occurrence: None)
  Receive Date: 20091130
  Receipt Date: 20091118
  Transmission Date: 20100525
  Serious: Yes (Other)
  Sender: FDA-Public Use
  Company Number: AU-ASTRAZENECA-2009SE27452

PATIENT
  Age: 63 Year
  Sex: Male

DRUGS (6)
  1. CRESTOR [Suspect]
     Indication: METABOLIC DISORDER
     Route: 048
     Dates: start: 20070713, end: 20080627
  2. AMARYL [Concomitant]
     Route: 048
     Dates: start: 20040402
  3. ASPIRIN [Concomitant]
     Route: 048
  4. AVANDIA [Concomitant]
     Route: 048
     Dates: start: 20040826
  5. LOVAN [Concomitant]
     Route: 048
  6. PARIET [Concomitant]
     Route: 048
     Dates: start: 20040326

REACTIONS (5)
  - FATIGUE [None]
  - GASTROOESOPHAGEAL REFLUX DISEASE [None]
  - HEPATITIS ACUTE [None]
  - JAUNDICE [None]
  - NAUSEA [None]
